FAERS Safety Report 15672621 (Version 1)
Quarter: 2018Q4

REPORT INFORMATION
  Report Type: Report from Study
  Country: US (occurrence: US)
  Receive Date: 20181129
  Receipt Date: 20181129
  Transmission Date: 20190205
  Serious: No
  Sender: FDA-Public Use
  Company Number: US-TESARO, INC.-US-2018TSO01927

PATIENT
  Sex: Female
  Weight: 66 kg

DRUGS (5)
  1. ZEJULA [Suspect]
     Active Substance: NIRAPARIB
     Dosage: 100 MG, QD
  2. ZEJULA [Suspect]
     Active Substance: NIRAPARIB
     Dosage: 100 MG, QPM (EVERY AFTERNOON)
     Route: 048
  3. ZEJULA [Suspect]
     Active Substance: NIRAPARIB
     Indication: FALLOPIAN TUBE CANCER
     Dosage: 100 MG, QD
     Route: 048
     Dates: start: 20180402
  4. ZEJULA [Suspect]
     Active Substance: NIRAPARIB
     Dosage: 300 MG QD
     Dates: start: 20180416
  5. ZEJULA [Suspect]
     Active Substance: NIRAPARIB
     Dosage: 100 MG, QD
     Route: 048

REACTIONS (11)
  - Pollakiuria [Unknown]
  - Intentional underdose [Recovered/Resolved]
  - Cystitis [Not Recovered/Not Resolved]
  - Middle insomnia [Not Recovered/Not Resolved]
  - Walking aid user [Unknown]
  - Insomnia [Recovered/Resolved]
  - Urinary tract infection [Not Recovered/Not Resolved]
  - Faeces hard [Unknown]
  - Fatigue [Recovered/Resolved]
  - Emotional distress [Unknown]
  - Constipation [Recovered/Resolved]

NARRATIVE: CASE EVENT DATE: 2018
